FAERS Safety Report 11048325 (Version 5)
Quarter: 2015Q2

REPORT INFORMATION
  Report Type: Spontaneous
  Country: IT (occurrence: IT)
  Receive Date: 20150420
  Receipt Date: 20150603
  Transmission Date: 20150821
  Serious: Yes (Hospitalization, Other)
  Sender: FDA-Public Use
  Company Number: IT-GILEAD-2015-0148306

PATIENT
  Age: 58 Year
  Sex: Male

DRUGS (6)
  1. REBETOL [Suspect]
     Active Substance: RIBAVIRIN
     Indication: CHRONIC HEPATITIS C
     Dosage: 1 DF, QD
     Route: 065
     Dates: start: 2015, end: 2015
  2. REBETOL [Suspect]
     Active Substance: RIBAVIRIN
     Dosage: 2 DF, BID
     Route: 065
     Dates: start: 20150317
  3. SOVALDI [Suspect]
     Active Substance: SOFOSBUVIR
     Indication: CHRONIC HEPATITIS C
     Dosage: 400 DF, BID
     Route: 065
     Dates: start: 2015, end: 2015
  4. REBETOL [Suspect]
     Active Substance: RIBAVIRIN
     Dosage: 1 DF, BID
     Route: 065
  5. SOVALDI [Suspect]
     Active Substance: SOFOSBUVIR
     Dosage: 400 MG, QD
     Route: 065
     Dates: start: 20150317
  6. TRIATEC                            /00885601/ [Concomitant]
     Active Substance: RAMIPRIL
     Indication: HYPERTENSION
     Route: 065

REACTIONS (6)
  - Anaemia [Unknown]
  - Myocardial ischaemia [Recovered/Resolved]
  - Accidental overdose [Recovered/Resolved]
  - Angina pectoris [Unknown]
  - Urosepsis [Unknown]
  - Medication error [Unknown]
